FAERS Safety Report 5215817-3 (Version None)
Quarter: 2007Q1

REPORT INFORMATION
  Report Type: 
  Country: None (occurrence: None)
  Receive Date: 20070123
  Receipt Date: 20070117
  Transmission Date: 20070707
  Serious: Yes (Hospitalization)
  Sender: FDA-Public Use
  Company Number: JP-BRISTOL-MYERS SQUIBB COMPANY-13649918

PATIENT
  Age: 16 Year
  Sex: Male

DRUGS (6)
  1. VEPESID [Suspect]
     Indication: ACUTE LYMPHOCYTIC LEUKAEMIA
     Route: 041
  2. VEPESID [Suspect]
     Indication: BONE MARROW CONDITIONING REGIMEN
     Route: 041
  3. ENDOXAN [Concomitant]
     Indication: ACUTE LYMPHOCYTIC LEUKAEMIA
  4. ENDOXAN [Concomitant]
     Indication: BONE MARROW CONDITIONING REGIMEN
  5. METHOTREXATE [Concomitant]
  6. TACROLIMUS [Concomitant]

REACTIONS (1)
  - CYSTITIS HAEMORRHAGIC [None]
